FAERS Safety Report 13538439 (Version 1)
Quarter: 2017Q2

REPORT INFORMATION
  Report Type: Report from Study
  Country: None (occurrence: US)
  Receive Date: 20170512
  Receipt Date: 20170512
  Transmission Date: 20170830
  Serious: No
  Sender: FDA-Public Use
  Company Number: US-BIOVITRUM-2016US0524

PATIENT
  Sex: Male

DRUGS (1)
  1. ORFADIN [Suspect]
     Active Substance: NITISINONE
     Indication: TYROSINAEMIA
     Dosage: 15 MG BID (10MG AND 5MG)
     Route: 048
     Dates: start: 20080721

REACTIONS (1)
  - Pruritus [Not Recovered/Not Resolved]
